FAERS Safety Report 16184243 (Version 1)
Quarter: 2019Q2

REPORT INFORMATION
  Report Type: Spontaneous
  Country: CA (occurrence: CA)
  Receive Date: 20190411
  Receipt Date: 20190411
  Transmission Date: 20190711
  Serious: Yes (Life-Threatening)
  Sender: FDA-Public Use
  Company Number: CA-PFIZER INC-2019150922

PATIENT
  Age: 65 Year
  Sex: Female

DRUGS (6)
  1. HYDROMORPHONE HYDROCHLORIDE. [Suspect]
     Active Substance: HYDROMORPHONE HYDROCHLORIDE
     Indication: CANCER PAIN
     Dosage: 2 MG, UNK [1 EVERY 1 HOUR(S)]
     Route: 042
  2. GABAPENTIN. [Concomitant]
     Active Substance: GABAPENTIN
     Dosage: UNK
  3. ZOPICLONE [Concomitant]
     Active Substance: ZOPICLONE
     Dosage: UNK
  4. ONDANSETRON [Concomitant]
     Active Substance: ONDANSETRON
     Dosage: UNK
  5. TRAZODONE [Concomitant]
     Active Substance: TRAZODONE HYDROCHLORIDE
     Dosage: UNK
  6. GRAVOL [Concomitant]
     Active Substance: DIMENHYDRINATE
     Dosage: UNK

REACTIONS (14)
  - Glomerular filtration rate decreased [Unknown]
  - Heart rate increased [Unknown]
  - Snoring [Unknown]
  - Blood urea increased [Unknown]
  - Venous oxygen saturation decreased [Unknown]
  - Lipase abnormal [Unknown]
  - Blood creatinine increased [Unknown]
  - Blood pH abnormal [Unknown]
  - Depressed level of consciousness [Unknown]
  - Hypotension [Unknown]
  - Lipase increased [Unknown]
  - Respiratory rate decreased [Unknown]
  - Troponin increased [Unknown]
  - Overdose [Unknown]
